FAERS Safety Report 5366753-3 (Version None)
Quarter: 2007Q2

REPORT INFORMATION
  Report Type: 
  Country: None (occurrence: None)
  Receive Date: 20070622
  Receipt Date: 20060420
  Transmission Date: 20071010
  Serious: No
  Sender: FDA-Public Use
  Company Number: US-ASTRAZENECA-2006UW06963

PATIENT
  Sex: Male

DRUGS (3)
  1. RHINOCORT [Suspect]
     Route: 045
     Dates: start: 20060320
  2. VYTORIN [Concomitant]
  3. ASPIRIN [Concomitant]

REACTIONS (1)
  - HEADACHE [None]
